FAERS Safety Report 20595525 (Version 2)
Quarter: 2022Q2

REPORT INFORMATION
  Report Type: Spontaneous
  Country: US (occurrence: US)
  Receive Date: 20220315
  Receipt Date: 20220510
  Transmission Date: 20220721
  Serious: No
  Sender: FDA-Public Use
  Company Number: US-PFIZER INC-202101739918

PATIENT
  Age: 46 Year
  Sex: Female

DRUGS (3)
  1. XELJANZ XR [Suspect]
     Active Substance: TOFACITINIB CITRATE
     Dosage: 11 MG
     Dates: start: 20211001
  2. XELJANZ XR [Suspect]
     Active Substance: TOFACITINIB CITRATE
     Dosage: 11 MG
     Dates: start: 20211201
  3. PREDNISONE [Suspect]
     Active Substance: PREDNISONE
     Dosage: UNK

REACTIONS (7)
  - Drug ineffective [Unknown]
  - Arthritis [Unknown]
  - Joint stiffness [Unknown]
  - Inflammation [Not Recovered/Not Resolved]
  - Arthralgia [Unknown]
  - Migraine [Unknown]
  - Product dose omission issue [Unknown]
